FAERS Safety Report 5904950-6 (Version None)
Quarter: 2008Q3

REPORT INFORMATION
  Report Type: 
  Country: None (occurrence: None)
  Receive Date: 20080909
  Receipt Date: 20080616
  Transmission Date: 20090109
  Serious: Yes (Disabling)
  Sender: FDA-Public Use
  Company Number: 163-20785-08030320

PATIENT
  Age: 87 Year
  Sex: Male
  Weight: 77.5651 kg

DRUGS (17)
  1. THALOMID [Suspect]
     Indication: MULTIPLE MYELOMA
     Dosage: 50 MG, DAILY AT BEDTIME, ORAL
     Route: 048
     Dates: start: 20071204, end: 20080109
  2. MELPHALAN (MELPHALAN) [Concomitant]
  3. MULTIVITAMINS (MULTIVITAMINS) (TABLETS) [Concomitant]
  4. COUMADIN (WARFARIN SODIUM) (5 MILLIGRAM) [Concomitant]
  5. PROTONIX [Concomitant]
  6. AMBIEN (ZOLPIDEM TARTRATE) (5 MILLIGRAM, TABLETS) [Concomitant]
  7. AMIODARONE HYDROCHLORIDE (AMIODARONE HYDROCHLORIDE) (200 MILLIGRAM, TA [Concomitant]
  8. ASPIRIN [Concomitant]
  9. ATIVAN (LORAZEPAM) (1 MILLIGRAM, TABLETS) [Concomitant]
  10. CYMBALTA (DULOXETINE HYDROCHLORIDE) (20 MILLIGRAM, CAPSULES) [Concomitant]
  11. DUONEB (COMBIVENT) (SOLUTION) [Concomitant]
  12. FERROUS SULFATE (FERROUS SULFATE) (325 MILLIGRM, TABLETS) [Concomitant]
  13. FLEXERIL (CYCLOBENZAPRINE HYDROCHLORIDE) (10 MILLIGRAM, TABLETS) [Concomitant]
  14. LASIX (FUROSEMIDE) (20 MILLIGRAM, TABLETS) [Concomitant]
  15. LORTAB [Concomitant]
  16. PREDNISONE (PREDNISONE) (20 MILLIGRAM, TABLETS) [Concomitant]
  17. RANITIDINE HYDROCHLORIDE (RANITIDINE HYDROCHLORIDE) (150 MILLIGRAM, TA [Concomitant]

REACTIONS (5)
  - ABDOMINAL DISCOMFORT [None]
  - ASTHENIA [None]
  - CONFUSIONAL STATE [None]
  - DYSPEPSIA [None]
  - SOMNOLENCE [None]
